FAERS Safety Report 19422023 (Version 1)
Quarter: 2021Q2

REPORT INFORMATION
  Report Type: Spontaneous
  Country: US (occurrence: US)
  Receive Date: 20210615
  Receipt Date: 20210615
  Transmission Date: 20210717
  Serious: Yes (Death)
  Sender: FDA-Public Use
  Company Number: None

PATIENT
  Age: 74 Year
  Sex: Female

DRUGS (1)
  1. AMBRISENTAN 10MG TABLETS 30/BO:10MG [Suspect]
     Active Substance: AMBRISENTAN
     Indication: PULMONARY HYPERTENSION
     Route: 048
     Dates: start: 20150109, end: 20210520

REACTIONS (4)
  - Breath sounds [None]
  - Cardiac arrest [None]
  - Ventricular fibrillation [None]
  - Breath sounds abnormal [None]

NARRATIVE: CASE EVENT DATE: 20210520
